FAERS Safety Report 8614937-0 (Version None)
Quarter: 2012Q3

REPORT INFORMATION
  Report Type: 
  Country: None (occurrence: None)
  Receive Date: 20120810
  Receipt Date: 20120810
  Transmission Date: 20120928
  Serious: Yes (Other)
  Sender: FDA-Public Use
  Company Number: None

PATIENT
  Age: 55 Year
  Sex: Female
  Weight: 49.8957 kg

DRUGS (1)
  1. FLEXERIL [Suspect]
     Indication: MUSCLE STRAIN
     Dosage: 1 TABLET 3 TIMES DAILY T
     Dates: start: 20120807, end: 20120808

REACTIONS (2)
  - BLISTER [None]
  - RASH [None]
